FAERS Safety Report 6417506-6 (Version None)
Quarter: 2009Q4

REPORT INFORMATION
  Report Type: 
  Country: None (occurrence: None)
  Receive Date: 20091027
  Receipt Date: 20091027
  Transmission Date: 20100525
  Serious: No
  Sender: FDA-Public Use
  Company Number: None

PATIENT
  Age: 85 Year
  Weight: 75.7507 kg

DRUGS (1)
  1. TOVIAZ [Suspect]
     Indication: URINARY INCONTINENCE
     Dosage: 4 0R 8 MG EACH NIGHT ORALLY
     Route: 048
     Dates: start: 20090827, end: 20090924

REACTIONS (3)
  - ANXIETY [None]
  - INSOMNIA [None]
  - URINARY BLADDER HAEMORRHAGE [None]
